FAERS Safety Report 4835703-8 (Version None)
Quarter: 2005Q4

REPORT INFORMATION
  Report Type: 
  Country: None (occurrence: None)
  Receive Date: 20051121
  Receipt Date: 20051114
  Transmission Date: 20060501
  Serious: Yes (Hospitalization)
  Sender: FDA-Public Use
  Company Number: 163-20785-05100339

PATIENT
  Age: 58 Year
  Sex: Female

DRUGS (5)
  1. THALOMID [Suspect]
     Indication: MULTIPLE MYELOMA
     Dosage: 200 MG, DAILY, ORAL
     Route: 048
     Dates: start: 20051010
  2. LANTUS [Concomitant]
  3. HUMULIN R INSULIN (INSULIN HUMAN) [Concomitant]
  4. METOPROLOL TARTRATE [Concomitant]
  5. PROTONIX [Concomitant]

REACTIONS (5)
  - ANAEMIA [None]
  - CARDIAC FAILURE CONGESTIVE [None]
  - DIALYSIS [None]
  - DISEASE PROGRESSION [None]
  - RENAL FAILURE CHRONIC [None]
